FAERS Safety Report 5946021-9 (Version None)
Quarter: 2008Q4

REPORT INFORMATION
  Report Type: 
  Country: None (occurrence: None)
  Receive Date: 20081110
  Receipt Date: 20081105
  Transmission Date: 20090506
  Serious: Yes (Other)
  Sender: FDA-Public Use
  Company Number: US-BAYER-200814088BCC

PATIENT
  Age: 81 Year
  Sex: Male
  Weight: 69 kg

DRUGS (3)
  1. ASPIRIN [Suspect]
     Indication: HEADACHE
     Dosage: UNIT DOSE: 81 MG
     Dates: start: 20081014
  2. ASPIRIN [Concomitant]
     Dates: start: 19930101
  3. HYTRIN [Concomitant]
     Dosage: TOTAL DAILY DOSE: 4 MG  UNIT DOSE: 2 MG

REACTIONS (4)
  - ANGINA PECTORIS [None]
  - BLOOD PRESSURE INCREASED [None]
  - HEADACHE [None]
  - TREMOR [None]
